FAERS Safety Report 4810035-2 (Version None)
Quarter: 2005Q4

REPORT INFORMATION
  Report Type: 
  Country: None (occurrence: None)
  Receive Date: 20051024
  Receipt Date: 20051014
  Transmission Date: 20060501
  Serious: Yes (Death)
  Sender: FDA-Public Use
  Company Number: 216888

PATIENT
  Age: 62 Year
  Sex: Female

DRUGS (11)
  1. RITUXAN [Suspect]
     Indication: NON-HODGKIN'S LYMPHOMA
     Dosage: 680 MG, INTRAVENOUS
     Route: 042
     Dates: start: 20040728, end: 20041004
  2. LEUSTATIN [Suspect]
     Indication: NON-HODGKIN'S LYMPHOMA
     Dosage: 6.5 MG, INTRAVENOUS
     Route: 042
     Dates: start: 20040729, end: 20041108
  3. VOLTAREN [Concomitant]
  4. MEQUITAZINE (MEQUITAZINE) [Concomitant]
  5. COTRIM [Concomitant]
  6. FAMOTIDINE [Concomitant]
  7. URSODIOL [Concomitant]
  8. GLUTATHIONE (GLUTATHIONE) [Concomitant]
  9. GYCEROPHOSPHORIC ACID (GLYCEROPHOSPHORIC ACID) [Concomitant]
  10. LAMIVUDINE [Concomitant]
  11. PREDNISONE [Concomitant]

REACTIONS (4)
  - HEPATIC FAILURE [None]
  - HEPATITIS B [None]
  - HEPATITIS C ANTIBODY POSITIVE [None]
  - MALAISE [None]
